FAERS Safety Report 7498330-2 (Version None)
Quarter: 2011Q2

REPORT INFORMATION
  Report Type: 
  Country: None (occurrence: None)
  Receive Date: 20110524
  Receipt Date: 20080122
  Transmission Date: 20111010
  Serious: Yes (Death, Hospitalization, Other)
  Sender: FDA-Public Use
  Company Number: US-BAYER-200811821NA

PATIENT
  Age: 65 Year
  Sex: Female
  Weight: 111.57 kg

DRUGS (13)
  1. COUMADIN [Concomitant]
     Dosage: 2.5 MG, QD FOR 3 DAYS
     Dates: start: 20010101
  2. TARKA [Concomitant]
     Dosage: 1 DAILY
     Route: 048
     Dates: start: 20010101
  3. TRASYLOL [Suspect]
     Indication: TRICUSPID VALVE REPLACEMENT
     Dosage: PUMP PRIME DOSE 200 ML
     Route: 042
     Dates: start: 20061214, end: 20061214
  4. HEPARIN [Concomitant]
     Dosage: 44000 U, UNK
     Route: 042
  5. COUMADIN [Concomitant]
     Dosage: 5 MG, QD FOR 4 DAYS
     Dates: start: 20010101
  6. TRASYLOL [Suspect]
     Indication: ATRIAL SEPTAL DEFECT
     Dosage: INFUSION STARTED AT 50 ML / HOUR
     Route: 042
     Dates: start: 20061214, end: 20061214
  7. ZOCOR [Concomitant]
     Dosage: 40 MG, UNK
     Route: 048
     Dates: start: 20010101
  8. BUMEX [Concomitant]
     Dosage: 1 MG EVERY OTHER DAY
  9. RED BLOOD CELLS [Concomitant]
     Dosage: 2 U, UNK
     Route: 042
     Dates: start: 20061214
  10. LOVENOX [Concomitant]
     Dosage: 1 / TWICE DAILY FOR 3 DAYS
     Route: 058
     Dates: start: 20061211
  11. EPINEPHRINE [Concomitant]
     Route: 042
  12. NEO-SYNEPHRINOL [Concomitant]
     Route: 042
  13. INSULIN [Concomitant]

REACTIONS (11)
  - PAIN [None]
  - RENAL FAILURE CHRONIC [None]
  - STRESS [None]
  - ANXIETY [None]
  - RENAL FAILURE [None]
  - INJURY [None]
  - ADVERSE EVENT [None]
  - DEPRESSION [None]
  - EMOTIONAL DISTRESS [None]
  - FEAR [None]
  - ANHEDONIA [None]
